FAERS Safety Report 8434750-7 (Version None)
Quarter: 2012Q2

REPORT INFORMATION
  Report Type: 
  Country: None (occurrence: None)
  Receive Date: 20120614
  Receipt Date: 20120606
  Transmission Date: 20120825
  Serious: Yes (Hospitalization, Other)
  Sender: FDA-Public Use
  Company Number: US-US-EMD SERONO, INC.-7138576

PATIENT
  Sex: Male

DRUGS (1)
  1. REBIF [Suspect]
     Indication: MULTIPLE SCLEROSIS
     Route: 058
     Dates: start: 20070609

REACTIONS (11)
  - ABDOMINAL DISCOMFORT [None]
  - WEIGHT DECREASED [None]
  - INJECTION SITE ERYTHEMA [None]
  - INJECTION SITE INDURATION [None]
  - DEHYDRATION [None]
  - FALL [None]
  - NASOPHARYNGITIS [None]
  - HYPOAESTHESIA [None]
  - INJECTION SITE PAIN [None]
  - SPINAL FRACTURE [None]
  - VITAMIN B12 DEFICIENCY [None]
